FAERS Safety Report 17240929 (Version 1)
Quarter: 2020Q1

REPORT INFORMATION
  Report Type: Spontaneous
  Country: DE (occurrence: DE)
  Receive Date: 20200107
  Receipt Date: 20200107
  Transmission Date: 20200409
  Serious: Yes (Hospitalization, Other)
  Sender: FDA-Public Use
  Company Number: DE-DENTSPLY-2019SCDP000714

PATIENT
  Sex: Female

DRUGS (1)
  1. PRILOCAINE AND LIDOCAINE [Suspect]
     Active Substance: LIDOCAINE\PRILOCAINE
     Indication: LOCAL ANAESTHESIA
     Dosage: AMOUNT THAT FIT ON THE TIP OF HER FINGER
     Route: 065

REACTIONS (2)
  - Injury corneal [Recovered/Resolved]
  - Product administration error [Unknown]
